FAERS Safety Report 6997743-2 (Version None)
Quarter: 2010Q3

REPORT INFORMATION
  Report Type: 
  Country: None (occurrence: None)
  Receive Date: 20100919
  Receipt Date: 20100907
  Transmission Date: 20110219
  Serious: Yes (Hospitalization, Other)
  Sender: FDA-Public Use
  Company Number: PHHY2010FR52412

PATIENT
  Sex: Female
  Weight: 79 kg

DRUGS (13)
  1. ACLASTA [Suspect]
     Indication: OSTEOPOROSIS
     Dosage: UNK
     Dates: start: 20100712
  2. TRAMADOL HCL [Concomitant]
  3. DAFLON [Concomitant]
  4. LASIX [Concomitant]
  5. LYSANXIA [Concomitant]
  6. OROCAL D3 [Concomitant]
  7. ACETAMINOPHEN [Concomitant]
  8. DIFFU K [Concomitant]
  9. TANAKAN [Concomitant]
  10. SERETIDE [Concomitant]
  11. CARTROL [Concomitant]
  12. XALATAN [Concomitant]
  13. UVEDOSE [Concomitant]

REACTIONS (8)
  - ARTHRALGIA [None]
  - DYSARTHRIA [None]
  - FEELING ABNORMAL [None]
  - INFLUENZA LIKE ILLNESS [None]
  - MYALGIA [None]
  - PAIN [None]
  - PSEUDARTHROSIS [None]
  - PYREXIA [None]
